FAERS Safety Report 9181165 (Version 2)
Quarter: 2013Q1

REPORT INFORMATION
  Report Type: Spontaneous
  Country: US (occurrence: US)
  Receive Date: 20130322
  Receipt Date: 20130322
  Transmission Date: 20140127
  Serious: No
  Sender: FDA-Public Use
  Company Number: US-MYLANLABS-2012S1011209

PATIENT
  Age: 54 Year
  Sex: Female

DRUGS (5)
  1. EMSAM [Suspect]
     Indication: DEPRESSION
     Dosage: Q DAY
     Route: 062
     Dates: start: 2011, end: 201206
  2. EMSAM [Suspect]
     Indication: DEPRESSION
     Dosage: Q 10 HOURS
     Route: 062
     Dates: start: 201206
  3. SYNTHROID [Concomitant]
     Indication: HYPOTHYROIDISM
  4. LIPTOR [Concomitant]
  5. LOPRESSOR [Concomitant]
     Indication: BLOOD PRESSURE INCREASED

REACTIONS (3)
  - Application site vesicles [Not Recovered/Not Resolved]
  - Application site pain [Not Recovered/Not Resolved]
  - Application site pruritus [Not Recovered/Not Resolved]
